FAERS Safety Report 9229655 (Version 1)
Quarter: 2013Q2

REPORT INFORMATION
  Report Type: Spontaneous
  Country: US (occurrence: US)
  Receive Date: 20130415
  Receipt Date: 20130415
  Transmission Date: 20140414
  Serious: No
  Sender: FDA-Public Use
  Company Number: US-009507513-1304USA005016

PATIENT
  Age: 50 Year
  Sex: Female

DRUGS (5)
  1. MAXALT [Suspect]
     Indication: MIGRAINE
     Dosage: 10 MG TAKEN AS NEEDED
     Route: 048
     Dates: start: 1998
  2. RIZATRIPTAN BENZOATE [Suspect]
     Indication: MIGRAINE
     Dosage: UNK
     Route: 048
     Dates: start: 201302
  3. IMITREX (SUMATRIPTAN) [Suspect]
     Indication: MIGRAINE
  4. ZOMIG [Suspect]
     Indication: MIGRAINE
  5. FIORINAL (ASPIRIN (+) BUTALBITAL (+) CAFFEINE) [Concomitant]

REACTIONS (9)
  - Impaired work ability [Unknown]
  - Somnolence [Unknown]
  - Wrong technique in drug usage process [Unknown]
  - Somnolence [Unknown]
  - Neck pain [Unknown]
  - Tachycardia [Unknown]
  - Road traffic accident [Unknown]
  - Migraine [Unknown]
  - Concussion [Unknown]
